FAERS Safety Report 10423602 (Version 1)
Quarter: 2014Q3

REPORT INFORMATION
  Report Type: Spontaneous
  Country: US (occurrence: None)
  Receive Date: 20140722
  Receipt Date: 20140722
  Transmission Date: 20150326
  Serious: No
  Sender: FDA-Public Use
  Company Number: AEGR000389

PATIENT
  Age: 71 Year
  Sex: Female
  Weight: 76.6 kg

DRUGS (15)
  1. VICTOZA [Concomitant]
     Active Substance: LIRAGLUTIDE
  2. LOVAZA [Concomitant]
     Active Substance: OMEGA-3-ACID ETHYL ESTERS
  3. VITAMIN E (TOCOPHERYL ACETATE) [Concomitant]
  4. CLONIDINE HCL (CLONIDINE HYDROCHLORIDE) [Concomitant]
  5. SYNTHROID [Concomitant]
     Active Substance: LEVOTHYROXINE SODIUM
  6. WEICHOL (COLESEVELAM HYDROCHLORIDE) [Concomitant]
  7. LEVEMIR [Concomitant]
     Active Substance: INSULIN DETEMIR
  8. HUMALOG MIX (INSULIN LISPRO, INSULIN LISPRO PROTAMINE SUSPENSION) [Concomitant]
  9. ALLOPURINOL. [Concomitant]
     Active Substance: ALLOPURINOL
  10. JUXTAPID [Suspect]
     Active Substance: LOMITAPIDE MESYLATE
     Indication: HYPERLIPIDAEMIA
     Route: 048
     Dates: start: 201304, end: 201310
  11. FERROUS SULFATE [Concomitant]
     Active Substance: FERROUS SULFATE\FERROUS SULFATE, DRIED
  12. CYMBALTA [Concomitant]
     Active Substance: DULOXETINE HYDROCHLORIDE
  13. VITAMIN D (ERGOCALCIFEROL) [Concomitant]
     Active Substance: ERGOCALCIFEROL
  14. ENABLEX (DARIFENACIN HYDROBROMIDE) [Concomitant]
  15. CALTRATE + D (CALCIUM CARBONATE, COLECALCIFEROL) [Concomitant]

REACTIONS (2)
  - Off label use [None]
  - Hepatic enzyme increased [None]

NARRATIVE: CASE EVENT DATE: 201304
